FAERS Safety Report 9254027 (Version 1)
Quarter: 2013Q2

REPORT INFORMATION
  Report Type: Spontaneous
  Country: US (occurrence: US)
  Receive Date: 20130425
  Receipt Date: 20130425
  Transmission Date: 20140414
  Serious: Yes (Disabling, Other)
  Sender: FDA-Public Use
  Company Number: US-SANOFI-AVENTIS-2013SA041617

PATIENT
  Sex: Male

DRUGS (3)
  1. LANTUS SOLOSTAR [Suspect]
     Indication: PRODUCT USED FOR UNKNOWN INDICATION
     Dosage: STATRT DATE OF THERAPY IS JUNE / JULY 2012
     Route: 051
  2. SOLOSTAR [Suspect]
     Indication: PRODUCT USED FOR UNKNOWN INDICATION
     Dosage: STATRT DATE OF THERAPY IS JUNE / JULY 2012
  3. METFORMIN [Concomitant]

REACTIONS (6)
  - Cataract [Unknown]
  - Localised infection [Unknown]
  - Diabetic neuropathy [Unknown]
  - Eye haemorrhage [Recovering/Resolving]
  - Diabetic retinopathy [Recovering/Resolving]
  - Glycosylated haemoglobin increased [Unknown]
